FAERS Safety Report 9049141 (Version 1)
Quarter: 2013Q1

REPORT INFORMATION
  Report Type: Spontaneous
  Country: US (occurrence: US)
  Receive Date: 20130205
  Receipt Date: 20130205
  Transmission Date: 20140127
  Serious: No
  Sender: FDA-Public Use
  Company Number: US-PFIZER INC-2013043135

PATIENT
  Sex: Female

DRUGS (3)
  1. SERTRALINE HCL [Suspect]
     Indication: DEPRESSION
     Dosage: 25 MG, 1X/DAY
     Route: 048
     Dates: start: 201201, end: 2012
  2. SERTRALINE HCL [Suspect]
     Dosage: 50 MG, 1X/DAY
     Route: 048
     Dates: start: 2012, end: 201211
  3. SERTRALINE HCL [Suspect]
     Dosage: 25 MG, 1X/DAY
     Dates: start: 201211

REACTIONS (3)
  - Fatigue [Unknown]
  - Drug intolerance [Unknown]
  - Drug ineffective [Unknown]
